FAERS Safety Report 8013930-9 (Version None)
Quarter: 2011Q4

REPORT INFORMATION
  Report Type: 
  Country: None (occurrence: None)
  Receive Date: 20111229
  Receipt Date: 20111222
  Transmission Date: 20120403
  Serious: Yes (Hospitalization)
  Sender: FDA-Public Use
  Company Number: PHEH2011US009083

PATIENT
  Sex: Male

DRUGS (2)
  1. LASIX [Concomitant]
  2. EXJADE [Suspect]
     Dosage: 500 MG, QID

REACTIONS (2)
  - FALL [None]
  - DEHYDRATION [None]
